FAERS Safety Report 7703908-4 (Version None)
Quarter: 2011Q3

REPORT INFORMATION
  Report Type: 
  Country: None (occurrence: None)
  Receive Date: 20110823
  Receipt Date: 20110717
  Transmission Date: 20111222
  Serious: Yes (Life-Threatening, Hospitalization, Other)
  Sender: FDA-Public Use
  Company Number: BR-ROCHE-757704

PATIENT
  Sex: Female
  Weight: 80 kg

DRUGS (23)
  1. ACETAMINOPHEN W/ CODEINE [Concomitant]
  2. OSCAL [Concomitant]
  3. HIDRION [Concomitant]
  4. METHOTREXATE [Concomitant]
     Route: 048
     Dates: start: 20090101
  5. TENOXICAM [Concomitant]
     Route: 048
     Dates: start: 20080101
  6. OSTEONUTRI [Concomitant]
  7. BONIVA [Concomitant]
  8. PANTOPRAZOLE [Concomitant]
  9. RITUXIMAB [Suspect]
     Indication: RHEUMATOID ARTHRITIS
     Dosage: FORM: INFUSION
     Route: 065
     Dates: start: 20071201, end: 20071215
  10. RITUXIMAB [Suspect]
     Route: 065
     Dates: start: 20110401, end: 20110501
  11. HYZAAR (HYDROCHLOROTHIAZIDE/LOSARTAN) [Concomitant]
     Dosage: DOSE: 50 MG + 12.5 MG
  12. ACETAMINOPHEN [Concomitant]
  13. HIDRION [Concomitant]
  14. TOCILIZUMAB [Suspect]
     Indication: RHEUMATOID ARTHRITIS
     Dosage: FORM: INFUSION
     Route: 042
     Dates: start: 20100701
  15. TOCILIZUMAB [Suspect]
     Dosage: FREQ: NOT REPORTED
     Route: 042
     Dates: start: 20100715, end: 20110131
  16. ALPRAZOLAM [Concomitant]
  17. DORMONID [Concomitant]
  18. CODEINE SULFATE [Concomitant]
  19. BOVINE COLOSTRUM [Concomitant]
  20. DOMPERIDONE [Concomitant]
  21. CALCIUM CARBONATE [Concomitant]
     Indication: OSTEOPOROSIS
     Dates: start: 19860101
  22. ROCALTROL [Concomitant]
  23. BAMIFIX [Concomitant]
     Indication: OSTEOPOROSIS
     Dates: start: 19860101

REACTIONS (15)
  - BRONCHOSPASM [None]
  - LEUKOPENIA [None]
  - PRURITUS [None]
  - DYSPHONIA [None]
  - NEUTROPENIA [None]
  - THERAPEUTIC RESPONSE DELAYED [None]
  - ARTHROPATHY [None]
  - EAR PRURITUS [None]
  - HYPERTENSION [None]
  - COUGH [None]
  - ORAL PRURITUS [None]
  - HAEMORRHAGE [None]
  - CHILLS [None]
  - PAIN [None]
  - NASOPHARYNGITIS [None]
